FAERS Safety Report 6651440-1 (Version None)
Quarter: 2010Q1

REPORT INFORMATION
  Report Type: 
  Country: None (occurrence: None)
  Receive Date: 20100325
  Receipt Date: 20100322
  Transmission Date: 20100710
  Serious: Yes (Death)
  Sender: FDA-Public Use
  Company Number: GB-ROCHE-496025

PATIENT
  Sex: Male

DRUGS (1)
  1. XELODA [Suspect]
     Route: 048
     Dates: start: 20060308, end: 20060323

REACTIONS (12)
  - DRUG TOXICITY [None]
  - DYSPHAGIA [None]
  - ERYTHEMA [None]
  - HAEMATOTOXICITY [None]
  - NEUTROPENIA [None]
  - OEDEMA GENITAL [None]
  - ORAL PAIN [None]
  - ORTHOSTATIC HYPOTENSION [None]
  - SKIN LACERATION [None]
  - SKIN TOXICITY [None]
  - SWELLING [None]
  - THROMBOCYTOPENIA [None]
